FAERS Safety Report 6375639-7 (Version None)
Quarter: 2009Q3

REPORT INFORMATION
  Report Type: 
  Country: None (occurrence: None)
  Receive Date: 20090924
  Receipt Date: 20090918
  Transmission Date: 20100115
  Serious: Yes (Death, Hospitalization)
  Sender: FDA-Public Use
  Company Number: IN-ELI_LILLY_AND_COMPANY-IN200909004178

PATIENT
  Age: 71 Year
  Sex: Male
  Weight: 80 kg

DRUGS (1)
  1. XIGRIS [Suspect]
     Indication: PNEUMONIA
     Dosage: UNK, UNKNOWN
     Route: 042
     Dates: start: 20090917, end: 20090917

REACTIONS (1)
  - MYOCARDIAL INFARCTION [None]
